FAERS Safety Report 23212981 (Version 1)
Quarter: 2023Q4

REPORT INFORMATION
  Report Type: Spontaneous
  Country: FR (occurrence: FR)
  Receive Date: 20231121
  Receipt Date: 20231121
  Transmission Date: 20240110
  Serious: Yes (Death, Other)
  Sender: FDA-Public Use
  Company Number: FR-CELLTRION HEALTHCARE HUNGARY KFT-2023FR020810

PATIENT
  Sex: Female
  Weight: 75 kg

DRUGS (10)
  1. OXALIPLATIN [Suspect]
     Active Substance: OXALIPLATIN
     Indication: Product used for unknown indication
     Dosage: 1 COURSE
     Route: 065
     Dates: start: 20221207
  2. OXALIPLATIN [Suspect]
     Active Substance: OXALIPLATIN
     Dosage: 1 COURSE
     Dates: start: 20221212
  3. GEMCITABINE [Suspect]
     Active Substance: GEMCITABINE
     Indication: Product used for unknown indication
     Dosage: 1 COURSE
     Route: 065
     Dates: start: 20221207
  4. GEMCITABINE [Suspect]
     Active Substance: GEMCITABINE
     Dosage: 1 COURSE
     Dates: start: 20221212
  5. RITUXIMAB [Suspect]
     Active Substance: RITUXIMAB
     Indication: Product used for unknown indication
     Dosage: 1 COURSE?CONCENTRATE FOR SOLUTION FOR INFUSION
     Route: 065
     Dates: start: 20221207
  6. RITUXIMAB [Suspect]
     Active Substance: RITUXIMAB
     Dosage: 1 COURSE?CONCENTRATE FOR SOLUTION FOR INFUSION
     Dates: start: 20221212
  7. TAFASITAMAB [Suspect]
     Active Substance: TAFASITAMAB
     Indication: Diffuse large B-cell lymphoma
     Dosage: UNK?POWDER FOR CONCENTRATE FOR SOLUTION FOR INFUSION
     Route: 042
     Dates: start: 20221212
  8. TAFASITAMAB [Suspect]
     Active Substance: TAFASITAMAB
     Dosage: 12.2 MILLIGRAM/KILOGRAM, D1 D4 D8 D15 D22?POWDER FOR CONCENTRATE FOR SOLUTION FOR INFUSION
     Route: 042
     Dates: start: 20221115, end: 20221129
  9. TAFASITAMAB [Suspect]
     Active Substance: TAFASITAMAB
     Dosage: 12.2 MILLIGRAM/KILOGRAM, D1 D4 D8 D15 D22?POWDER FOR CONCENTRATE FOR SOLUTION FOR INFUSION
     Route: 042
     Dates: start: 20221115, end: 20221129
  10. TAFASITAMAB [Suspect]
     Active Substance: TAFASITAMAB
     Dosage: 12.2 MILLIGRAM/KILOGRAM, D1 D4 D8 D15 D22?POWDER FOR CONCENTRATE FOR SOLUTION FOR INFUSION
     Route: 042
     Dates: start: 20221115, end: 20221129

REACTIONS (4)
  - Diffuse large B-cell lymphoma [Fatal]
  - General physical health deterioration [Fatal]
  - Disease progression [Fatal]
  - Drug ineffective [Unknown]
